FAERS Safety Report 4874426-6 (Version None)
Quarter: 2005Q4

REPORT INFORMATION
  Report Type: 
  Country: None (occurrence: None)
  Receive Date: 20051201
  Receipt Date: 20050810
  Transmission Date: 20060501
  Serious: No
  Sender: FDA-Public Use
  Company Number: 2005PV001057

PATIENT
  Age: 48 Year
  Sex: Male
  Weight: 129.2752 kg

DRUGS (7)
  1. BYETTA [Suspect]
     Indication: DIABETES MELLITUS
     Dosage: 5 MCG; BID; SC
     Route: 058
     Dates: start: 20050805
  2. HUMULIN N [Concomitant]
  3. AVANDIA [Concomitant]
  4. METFORMIN HYDROCHLORIDE [Concomitant]
  5. LIPITOR [Concomitant]
  6. COZAAR [Concomitant]
  7. ............... [Concomitant]

REACTIONS (1)
  - BLOOD GLUCOSE INCREASED [None]
